FAERS Safety Report 16776159 (Version 5)
Quarter: 2019Q4

REPORT INFORMATION
  Report Type: Spontaneous
  Country: US (occurrence: US)
  Receive Date: 20190905
  Receipt Date: 20191008
  Transmission Date: 20200122
  Serious: No
  Sender: FDA-Public Use
  Company Number: US-PFIZER INC-2019382282

PATIENT
  Age: 83 Year
  Sex: Female
  Weight: 80.73 kg

DRUGS (9)
  1. ATACAND [Concomitant]
     Active Substance: CANDESARTAN CILEXETIL
     Indication: HYPERTENSION
     Dosage: 16 MG, 2X/DAY
     Dates: start: 2016
  2. ATACAND [Concomitant]
     Active Substance: CANDESARTAN CILEXETIL
     Dosage: 16 MG, 2X/DAY
     Dates: start: 201702, end: 20190731
  3. FELODIPINE. [Concomitant]
     Active Substance: FELODIPINE
     Indication: HYPERTENSION
     Dosage: 5 MG, 1X/DAY
     Dates: start: 2017
  4. XALATAN [Suspect]
     Active Substance: LATANOPROST
     Indication: GLAUCOMA
     Dosage: 2 GTT, 1X/DAY (1 DROP EACH EYE ONCE A DAY), (ONE DROP EACH EYE DAILY EVERY EVENING)
     Route: 047
     Dates: start: 2015
  5. XALATAN [Suspect]
     Active Substance: LATANOPROST
     Dosage: 2 GTT, 1X/DAY [INSTILL 1 DROP INTO EACH EYE IN THE EVENING]
     Route: 047
  6. LABETALOL [Concomitant]
     Active Substance: LABETALOL\LABETALOL HYDROCHLORIDE
     Dosage: 100 MG, 2X/DAY
     Dates: start: 20190917
  7. FELODIPINE. [Concomitant]
     Active Substance: FELODIPINE
     Dosage: 5 MG, 1X/DAY
     Dates: start: 20180718, end: 20190802
  8. XALATAN [Suspect]
     Active Substance: LATANOPROST
     Indication: EYE DISORDER
     Dosage: 2 GTT, 1X/DAY (1 DROP EACH EYE ONCE A DAY)
     Route: 047
  9. LABETALOL [Concomitant]
     Active Substance: LABETALOL\LABETALOL HYDROCHLORIDE
     Indication: HYPERTENSION
     Dosage: UNK
     Dates: start: 20190208

REACTIONS (4)
  - Oropharyngeal discomfort [Not Recovered/Not Resolved]
  - Suspected counterfeit product [Not Recovered/Not Resolved]
  - Cough [Not Recovered/Not Resolved]
  - Feeling abnormal [Not Recovered/Not Resolved]
